FAERS Safety Report 5281884-4 (Version None)
Quarter: 2007Q1

REPORT INFORMATION
  Report Type: 
  Country: None (occurrence: None)
  Receive Date: 20070326
  Receipt Date: 20070309
  Transmission Date: 20070707
  Serious: Yes (Hospitalization, Other)
  Sender: FDA-Public Use
  Company Number: 15925

PATIENT
  Age: 77 Year
  Sex: Male

DRUGS (1)
  1. CYTARABINE. MFR: MAYNE PHARMA [Suspect]
     Indication: ACUTE MYELOID LEUKAEMIA
     Dosage: 20 MG/M2 QD SC
     Route: 058
     Dates: start: 20061121

REACTIONS (12)
  - DISSEMINATED INTRAVASCULAR COAGULATION [None]
  - FEBRILE BONE MARROW APLASIA [None]
  - HAEMATOCRIT DECREASED [None]
  - HAEMOGLOBIN DECREASED [None]
  - HEPATIC CANDIDIASIS [None]
  - HEPATIC LESION [None]
  - INTERNATIONAL NORMALISED RATIO INCREASED [None]
  - LIVER ABSCESS [None]
  - RED BLOOD CELL COUNT INCREASED [None]
  - SEPSIS [None]
  - WHITE BLOOD CELL COUNT DECREASED [None]
  - WHITE BLOOD CELL COUNT INCREASED [None]
